FAERS Safety Report 6192483-4 (Version None)
Quarter: 2009Q2

REPORT INFORMATION
  Report Type: 
  Country: None (occurrence: None)
  Receive Date: 20090518
  Receipt Date: 20090508
  Transmission Date: 20091009
  Serious: Yes (Hospitalization, Other)
  Sender: FDA-Public Use
  Company Number: US-BAYER-200917314NA

PATIENT
  Age: 55 Year
  Sex: Female

DRUGS (6)
  1. AVELOX [Suspect]
     Indication: PYREXIA
     Dates: start: 20090101
  2. ZITHROMAX [Suspect]
     Indication: PYREXIA
     Route: 042
     Dates: start: 20090101
  3. LEVAQUIN [Suspect]
     Indication: PYREXIA
     Route: 042
     Dates: start: 20090301
  4. ROCEPHIN [Suspect]
     Indication: PYREXIA
     Route: 042
     Dates: start: 20090301
  5. GENTAMYCIN SULFATE [Concomitant]
  6. FORTINOL [Concomitant]

REACTIONS (5)
  - CHILLS [None]
  - OXYGEN SATURATION DECREASED [None]
  - PNEUMONIA [None]
  - PULMONARY FUNCTION TEST DECREASED [None]
  - PYREXIA [None]
